FAERS Safety Report 6199068-4 (Version None)
Quarter: 2009Q2

REPORT INFORMATION
  Report Type: 
  Country: None (occurrence: None)
  Receive Date: 20090522
  Receipt Date: 20090515
  Transmission Date: 20091009
  Serious: Yes (Hospitalization, Other)
  Sender: FDA-Public Use
  Company Number: US-ELI_LILLY_AND_COMPANY-US200905003301

PATIENT
  Sex: Female

DRUGS (2)
  1. FORTEO [Suspect]
     Dosage: UNK, UNK
     Dates: end: 20090501
  2. FORTEO [Suspect]
     Dosage: UNK, EACH EVENING
     Dates: start: 20090501

REACTIONS (2)
  - FOOT FRACTURE [None]
  - UPPER LIMB FRACTURE [None]
